FAERS Safety Report 7308769-3 (Version None)
Quarter: 2011Q1

REPORT INFORMATION
  Report Type: 
  Country: None (occurrence: None)
  Receive Date: 20110223
  Receipt Date: 20110214
  Transmission Date: 20110831
  Serious: Yes (Hospitalization, Other)
  Sender: FDA-Public Use
  Company Number: PHHO2010ZA15903

PATIENT
  Sex: Male
  Weight: 70.1 kg

DRUGS (9)
  1. TASIGNA [Suspect]
     Indication: GASTROINTESTINAL STROMAL TUMOUR
     Dosage: 400 MG, BID
     Route: 048
     Dates: start: 20101013, end: 20101014
  2. IRON SUPPLEMENTS [Concomitant]
  3. CALCIUM [Concomitant]
  4. LENTOGESIC [Suspect]
     Indication: PAIN
     Dosage: 1-2 TABLETS 4-6 HOURLY
     Route: 048
     Dates: start: 20101012, end: 20101026
  5. SUCRALFATE [Concomitant]
     Indication: DYSPEPSIA
  6. MORPHINE [Suspect]
  7. ZAFOR [Suspect]
     Indication: NAUSEA
     Dosage: 400MG PRN BD
     Route: 048
     Dates: start: 20101017, end: 20101026
  8. DURAGESIC-100 [Suspect]
  9. RABEPRAZOLE SODIUM [Concomitant]
     Indication: DYSPEPSIA

REACTIONS (9)
  - ABDOMINAL PAIN [None]
  - VOMITING [None]
  - INTESTINAL OBSTRUCTION [None]
  - HYPOPHAGIA [None]
  - CONSTIPATION [None]
  - NAUSEA [None]
  - INFECTION [None]
  - PYREXIA [None]
  - HYPERCALCAEMIA [None]
